FAERS Safety Report 17364344 (Version 3)
Quarter: 2021Q2

REPORT INFORMATION
  Report Type: Report from Study
  Country: US (occurrence: US)
  Receive Date: 20200204
  Receipt Date: 20210626
  Transmission Date: 20210716
  Serious: No
  Sender: FDA-Public Use
  Company Number: US-SHIRE-US202003691

PATIENT
  Age: 76 Year
  Sex: Female

DRUGS (8)
  1. TEDUGLUTIDE [Suspect]
     Active Substance: TEDUGLUTIDE
     Dosage: 0.13 UNK, 1X/DAY:QD
     Route: 050
     Dates: start: 20190402
  2. TEDUGLUTIDE [Suspect]
     Active Substance: TEDUGLUTIDE
     Indication: PRODUCT USED FOR UNKNOWN INDICATION
     Dosage: 0.13 UNK, 1X/DAY:QD
     Route: 065
     Dates: start: 20190402
  3. TEDUGLUTIDE [Suspect]
     Active Substance: TEDUGLUTIDE
     Dosage: 0.13 UNK, 1X/DAY:QD
     Route: 050
     Dates: start: 20190402
  4. TEDUGLUTIDE [Suspect]
     Active Substance: TEDUGLUTIDE
     Dosage: 0.13 UNK, 1X/DAY:QD
     Route: 050
     Dates: start: 20190402
  5. TEDUGLUTIDE [Suspect]
     Active Substance: TEDUGLUTIDE
     Dosage: 0.13 UNK, 1X/DAY:QD
     Route: 050
     Dates: start: 20190402
  6. TEDUGLUTIDE [Suspect]
     Active Substance: TEDUGLUTIDE
     Indication: PRODUCT USED FOR UNKNOWN INDICATION
     Dosage: 0.13 UNK, 1X/DAY:QD
     Route: 065
     Dates: start: 20190402
  7. TEDUGLUTIDE [Suspect]
     Active Substance: TEDUGLUTIDE
     Indication: PRODUCT USED FOR UNKNOWN INDICATION
     Dosage: 0.13 UNK, 1X/DAY:QD
     Route: 065
     Dates: start: 20190402
  8. TEDUGLUTIDE [Suspect]
     Active Substance: TEDUGLUTIDE
     Indication: PRODUCT USED FOR UNKNOWN INDICATION
     Dosage: 0.13 UNK, 1X/DAY:QD
     Route: 065
     Dates: start: 20190402

REACTIONS (4)
  - Product dose omission issue [Unknown]
  - Therapy interrupted [Recovered/Resolved]
  - Product distribution issue [Recovered/Resolved]
  - Stoma complication [Unknown]

NARRATIVE: CASE EVENT DATE: 20200103
